FAERS Safety Report 7280132-3 (Version None)
Quarter: 2011Q1

REPORT INFORMATION
  Report Type: 
  Country: None (occurrence: None)
  Receive Date: 20110203
  Receipt Date: 20110203
  Transmission Date: 20110831
  Serious: Yes (Life-Threatening, Hospitalization, Other)
  Sender: FDA-Public Use
  Company Number: None

PATIENT
  Age: 20 Year
  Sex: Female
  Weight: 55.7924 kg

DRUGS (4)
  1. SUBOXONE [Suspect]
     Indication: PAIN
     Dosage: 4MG-8MG DAILY SL
     Route: 060
     Dates: start: 20090906, end: 20090911
  2. SUBOXONE [Suspect]
     Indication: DRUG WITHDRAWAL SYNDROME
     Dosage: 4MG-8MG DAILY SL
     Route: 060
     Dates: start: 20090906, end: 20090911
  3. SUBOXONE [Suspect]
     Indication: PAIN
     Dosage: 4MG-8MG DAILY SL
     Route: 060
     Dates: start: 20100201, end: 20110120
  4. SUBOXONE [Suspect]
     Indication: DRUG WITHDRAWAL SYNDROME
     Dosage: 4MG-8MG DAILY SL
     Route: 060
     Dates: start: 20100201, end: 20110120

REACTIONS (9)
  - SOMNOLENCE [None]
  - INSOMNIA [None]
  - HYPERHIDROSIS [None]
  - CONDITION AGGRAVATED [None]
  - ASTHENIA [None]
  - FEELING OF BODY TEMPERATURE CHANGE [None]
  - AKATHISIA [None]
  - PAIN [None]
  - ANXIETY [None]
